FAERS Safety Report 6474982-0 (Version None)
Quarter: 2009Q4

REPORT INFORMATION
  Report Type: 
  Country: None (occurrence: None)
  Receive Date: 20091204
  Receipt Date: 20090526
  Transmission Date: 20100525
  Serious: Yes (Other)
  Sender: FDA-Public Use
  Company Number: US-ELI_LILLY_AND_COMPANY-US200904000647

PATIENT
  Sex: Female

DRUGS (10)
  1. EVISTA [Suspect]
     Dosage: 60 MG, UNKNOWN
     Route: 065
     Dates: start: 20080630, end: 20080728
  2. PROZAC [Concomitant]
     Indication: DEPRESSION
     Dosage: 20 MG, DAILY (1/D)
     Route: 065
  3. CLONAZEPAM [Concomitant]
     Indication: DEPRESSION
     Dosage: 0.1 MG, DAILY (1/D)
     Route: 065
  4. LEVOTHYROXINE SODIUM [Concomitant]
     Indication: HYPOTHYROIDISM
     Dosage: 112 MG, DAILY (1/D)
     Route: 065
  5. ATENOLOL [Concomitant]
     Indication: HYPERTENSION
     Dosage: 100 MG, DAILY (1/D)
     Route: 065
  6. SINEMET /NET/ [Concomitant]
     Indication: PARKINSON'S DISEASE
     Dosage: UNK, 3/D
     Route: 065
  7. MIRAPEX [Concomitant]
     Indication: PARKINSON'S DISEASE
     Dosage: 0.5 MG, 3/D
     Route: 065
  8. CALCIUM W/VITAMIN D NOS [Concomitant]
     Indication: OSTEOPENIA
     Dosage: UNK, 2/D
     Route: 065
  9. OXYGEN [Concomitant]
     Indication: HYPOXIA
     Dosage: UNK, UNKNOWN
     Route: 065
     Dates: start: 20080301
  10. NAPROSYN [Concomitant]
     Indication: OSTEOARTHRITIS
     Dosage: 500 MG, AS NEEDED
     Route: 065

REACTIONS (1)
  - TRANSIENT ISCHAEMIC ATTACK [None]
